FAERS Safety Report 19689976 (Version 3)
Quarter: 2022Q4

REPORT INFORMATION
  Report Type: Spontaneous
  Country: US (occurrence: US)
  Receive Date: 20210811
  Receipt Date: 20221013
  Transmission Date: 20230113
  Serious: Yes (Hospitalization)
  Sender: FDA-Public Use
  Company Number: US-SA-SAC20210810000607

PATIENT
  Age: 61 Year
  Sex: Female

DRUGS (1)
  1. DUPIXENT [Suspect]
     Active Substance: DUPILUMAB
     Indication: Nasal polyps
     Dosage: 300 MG,QOW
     Route: 058
     Dates: start: 20210618

REACTIONS (8)
  - Hospitalisation [Unknown]
  - Mental disorder [Unknown]
  - Temperature intolerance [Unknown]
  - General physical condition abnormal [Unknown]
  - Dyspnoea [Unknown]
  - Vision blurred [Unknown]
  - Anxiety [Unknown]
  - Conjunctivitis [Unknown]
